FAERS Safety Report 8884738 (Version 1)
Quarter: 2012Q4

REPORT INFORMATION
  Report Type: 
  Country: BR (occurrence: BR)
  Receive Date: 20121105
  Receipt Date: 20121105
  Transmission Date: 20130627
  Serious: Yes (Other)
  Sender: FDA-Public Use
  Company Number: BR-AMGEN-BRASP2012069885

PATIENT
  Age: 53 Year
  Sex: Female
  Weight: 76 kg

DRUGS (6)
  1. ENBREL [Suspect]
     Indication: RHEUMATOID ARTHRITIS
     Dosage: 50 mg, once weekly
     Route: 058
     Dates: start: 201108
  2. METHOTREXATE [Concomitant]
     Dosage: 4 tablets of strength 2.5 mg (10 mg) 1x (unspecified frequency)
  3. OMEPRAZOLE [Concomitant]
     Dosage: 20 mg, 1x/day
  4. FOLIC ACID [Concomitant]
     Dosage: UNK
  5. LOSARTAN [Concomitant]
     Dosage: 50 mg, 1x/day
  6. ARFLEX [Concomitant]
     Dosage: UNK UNK, UNK

REACTIONS (1)
  - Arthropathy [Unknown]
